FAERS Safety Report 7894215-8 (Version None)
Quarter: 2011Q4

REPORT INFORMATION
  Report Type: 
  Country: None (occurrence: None)
  Receive Date: 20111104
  Receipt Date: 20111028
  Transmission Date: 20120403
  Serious: Yes (Hospitalization)
  Sender: FDA-Public Use
  Company Number: PHHO2011AU17152

PATIENT
  Sex: Male

DRUGS (34)
  1. PREDNISOLONE [Concomitant]
     Dosage: 12.5 MG, EVERY OTHER DAY
     Route: 048
     Dates: start: 20110814, end: 20110816
  2. LANTUS [Concomitant]
     Dosage: 10 U, QD
     Dates: start: 20110912, end: 20110922
  3. ENOXAPARIN SODIUM [Concomitant]
     Dosage: 80 MG, UNK
     Dates: start: 20110707, end: 20111008
  4. PANTOPRAZOLE [Concomitant]
     Dosage: 40 MG, BID
     Route: 042
     Dates: start: 20110504, end: 20110506
  5. CALCIUM W/VITAMIN D NOS [Concomitant]
  6. HYDROCORTISONE [Concomitant]
     Dosage: 100 MG, Q6H
     Route: 042
     Dates: start: 20110524, end: 20110524
  7. PROCHLORPERAZINE [Concomitant]
     Dosage: 5 MG, TID
     Route: 048
     Dates: start: 20110922, end: 20110922
  8. BLOOD CELLS, PACKED HUMAN [Concomitant]
     Dosage: 2 U ONCE ONLY
     Route: 042
     Dates: start: 20110924, end: 20110924
  9. CEFATRIZINE [Concomitant]
     Dosage: 20 MG, BID
     Route: 048
     Dates: start: 20110923
  10. AMLODIPINE [Concomitant]
     Dosage: 5 MG, QD
     Route: 048
     Dates: start: 20110526, end: 20110623
  11. ASPIRIN [Concomitant]
     Dosage: 50 MG, QD
     Route: 048
     Dates: start: 19890101
  12. PREDNISOLONE [Concomitant]
     Dosage: 10 MG, EVERY OTHER DAY
     Route: 048
     Dates: start: 19970101, end: 20110414
  13. PREDNISOLONE [Concomitant]
     Dosage: 5 MG, QD
     Route: 048
     Dates: start: 20110819, end: 20110821
  14. DARBEPOETIN ALFA [Concomitant]
     Dosage: 20 MG, QW2
     Dates: start: 20110906
  15. FENTANYL [Concomitant]
     Dosage: 2.1 MG, EVERY THREE DAYS
     Route: 061
     Dates: start: 20110923
  16. PANTOPRAZOLE [Concomitant]
     Dosage: 40 MG, BID
     Route: 048
     Dates: start: 20110406
  17. HYDROCORTISONE [Concomitant]
     Dosage: 200 MG,ONCE ONLY
     Route: 042
     Dates: start: 20110923, end: 20110923
  18. PREDNISOLONE [Concomitant]
     Dosage: 5 MG, EVERY OTHER DAY
     Route: 048
     Dates: start: 20110415, end: 20110715
  19. PREDNISOLONE [Concomitant]
     Dosage: 10 MG, QD
     Route: 048
     Dates: start: 20110817, end: 20110818
  20. OXYCODONE HCL [Concomitant]
     Dosage: 5 MG, PRN
     Route: 048
     Dates: start: 20110915, end: 20110925
  21. ADRENALIN IN OIL INJ [Concomitant]
     Dosage: 0.5 AND 1 MG, UNK
     Route: 030
     Dates: start: 20110923, end: 20110923
  22. MULTIVITAMIN [Concomitant]
     Indication: PROPHYLAXIS
     Dosage: 2, ONCE A DAY
     Dates: start: 20060101
  23. CALCIUM AND ERGOCALCIFEROL [Concomitant]
     Indication: PROPHYLAXIS
     Dosage: 2, ONCE A DAY
     Dates: start: 20060101
  24. SPIRIVA [Concomitant]
     Dosage: 2 ONCE A DAY
     Dates: start: 20110811
  25. NOVORAPID [Concomitant]
  26. PANAMAX [Concomitant]
     Dosage: 1 G, Q6H
     Route: 048
     Dates: start: 20110404
  27. AMLODIPINE [Concomitant]
     Dosage: 7.5 MG, QD
     Route: 048
     Dates: start: 20110624
  28. PREDNISOLONE [Concomitant]
     Dosage: 7.5 MG, QD
     Route: 048
     Dates: start: 20110830, end: 20110908
  29. ZYRTEC [Concomitant]
  30. PREDNISOLONE [Concomitant]
     Dosage: 5 MG, EVERY OTHER DAY
     Route: 048
     Dates: start: 19970101, end: 20110414
  31. PREDNISOLONE [Concomitant]
     Dosage: 50 MG, EVERY OTHER DAY
     Route: 048
     Dates: start: 20110715, end: 20110810
  32. PREDNISOLONE [Concomitant]
     Dosage: 10 MG, QD
     Route: 048
     Dates: start: 20110822, end: 20110829
  33. PHENERGAN HCL [Concomitant]
     Dosage: 20 MG, UNK
     Route: 048
     Dates: start: 20110923, end: 20110923
  34. AFINITOR [Suspect]
     Indication: RENAL CELL CARCINOMA
     Dosage: UNK
     Route: 048
     Dates: start: 20110929

REACTIONS (1)
  - EMBOLISM [None]
